FAERS Safety Report 6344196-3 (Version None)
Quarter: 2009Q3

REPORT INFORMATION
  Report Type: 
  Country: None (occurrence: None)
  Receive Date: 20090908
  Receipt Date: 20090827
  Transmission Date: 20100115
  Serious: Yes (Hospitalization)
  Sender: FDA-Public Use
  Company Number: DE-PFIZER INC-2009261149

PATIENT
  Age: 66 Year

DRUGS (7)
  1. SOMATROPIN [Suspect]
     Indication: HYPOPITUITARISM
     Dosage: 0.2 MG, 1X/DAY
     Dates: start: 20051215
  2. L-THYROXIN [Concomitant]
     Dosage: UNK
  3. HYDROCORTISONE [Concomitant]
     Dosage: UNK
  4. MINRIN [Concomitant]
     Dosage: UNK
  5. ISCOVER [Concomitant]
     Dosage: 75 MG, 1X/DAY
     Route: 048
  6. SIMVASTATIN [Concomitant]
     Dosage: 10 MG, 1X/DAY
     Route: 048
  7. PANTOZOL [Concomitant]
     Dosage: 20 MG, 1X/DAY
     Route: 048

REACTIONS (1)
  - OVARIAN CANCER [None]
